FAERS Safety Report 5810798-3 (Version None)
Quarter: 2008Q3

REPORT INFORMATION
  Report Type: 
  Country: None (occurrence: None)
  Receive Date: 20080709
  Receipt Date: 20080623
  Transmission Date: 20090109
  Serious: Yes (Congenital Anomaly)
  Sender: FDA-Public Use
  Company Number: S08-FRA-00093-02

PATIENT
  Sex: Male
  Weight: 2.3 kg

DRUGS (2)
  1. SEROPLEX (ESCITALOPRAM) [Suspect]
     Dosage: 5 MG QD, TRANSPLACENTAL
     Route: 064
     Dates: start: 20060401
  2. LEXOMIL (BROMAZEPAM) [Concomitant]

REACTIONS (7)
  - CARDIAC MURMUR [None]
  - FOETAL CARDIAC DISORDER [None]
  - FOETAL DISTRESS SYNDROME [None]
  - FOETAL GROWTH RETARDATION [None]
  - FOETAL HEART RATE DECREASED [None]
  - MATERNAL DRUGS AFFECTING FOETUS [None]
  - SMALL FOR DATES BABY [None]
